FAERS Safety Report 7299250-9 (Version None)
Quarter: 2011Q1

REPORT INFORMATION
  Report Type: 
  Country: None (occurrence: None)
  Receive Date: 20110217
  Receipt Date: 20110215
  Transmission Date: 20110831
  Serious: Yes (Hospitalization)
  Sender: FDA-Public Use
  Company Number: US-MERCK-1101USA00791

PATIENT

DRUGS (1)
  1. ZETIA [Suspect]
     Route: 048

REACTIONS (1)
  - MITOCHONDRIAL MYOPATHY [None]
